FAERS Safety Report 7179230-4 (Version None)
Quarter: 2010Q4

REPORT INFORMATION
  Report Type: 
  Country: None (occurrence: None)
  Receive Date: 20101209
  Receipt Date: 20101124
  Transmission Date: 20110411
  Serious: Yes (Hospitalization)
  Sender: FDA-Public Use
  Company Number: 2010AP000839

PATIENT
  Age: 57 Year
  Sex: Female

DRUGS (15)
  1. CLARITHROMYCIN [Suspect]
     Indication: ILL-DEFINED DISORDER
     Dates: end: 20091209
  2. YONDELIS [Suspect]
     Indication: SARCOMA METASTATIC
     Dosage: 1.2 MG/M**2, IV, 1.2 MG/M**2; POW_INJ; IV, 1.2 MG/M**2; POW_INJ; IV
     Route: 042
     Dates: start: 20091001
  3. YONDELIS [Suspect]
     Indication: SARCOMA METASTATIC
     Dosage: 1.2 MG/M**2, IV, 1.2 MG/M**2; POW_INJ; IV, 1.2 MG/M**2; POW_INJ; IV
     Route: 042
     Dates: start: 20091202
  4. ACETYLSALICYLIC ACIDI (ACETYLSALICYLIC ACID) [Concomitant]
  5. CLARITHROMYCIN [Concomitant]
  6. CYCLIZINE (CYCLIZINE) [Concomitant]
  7. DEXAMETHASONE [Concomitant]
  8. OMEPRAZOLE [Concomitant]
  9. TRAMADOL HCL [Concomitant]
  10. ASPIRIN [Concomitant]
  11. TRABECTEDIN (TRABECTEDIN) [Concomitant]
  12. ATENOLOL [Concomitant]
  13. DOXORUBICIN (DOXORUBICIN) [Concomitant]
  14. GRANISETRON (GRANISETRON) [Concomitant]
  15. G-CSF (GRANULOCYTE COLONY STIMULATING FACTOR) [Concomitant]

REACTIONS (5)
  - ALANINE AMINOTRANSFERASE INCREASED [None]
  - BLOOD CREATINE PHOSPHOKINASE INCREASED [None]
  - BLOOD CREATININE INCREASED [None]
  - DRUG INTERACTION [None]
  - MYALGIA [None]
